FAERS Safety Report 6322151-7 (Version None)
Quarter: 2009Q3

REPORT INFORMATION
  Report Type: 
  Country: None (occurrence: None)
  Receive Date: 20090824
  Receipt Date: 20090813
  Transmission Date: 20100115
  Serious: Yes (Hospitalization, Other)
  Sender: FDA-Public Use
  Company Number: US-ROCHE-486717

PATIENT
  Sex: Female
  Weight: 66.7 kg

DRUGS (4)
  1. CELLCEPT [Suspect]
     Indication: WAGNER'S DISEASE
     Dosage: 2 (500 MG) TABLETS IN THE MORNING AND 2 IN THE EVENING; OTHER INDICATION: AUTOIMMUNE DISEASE
     Route: 048
     Dates: start: 20030101
  2. CELLCEPT [Suspect]
     Dosage: DOSE: 3 CAPSULE IN THE MORNING AND 2 IN THE EVENING
     Route: 048
     Dates: start: 20080211
  3. BACTRIM [Concomitant]
  4. FLOVENT [Concomitant]

REACTIONS (23)
  - ABDOMINAL PAIN UPPER [None]
  - ANXIETY [None]
  - CONTUSION [None]
  - DIARRHOEA [None]
  - DRUG INEFFECTIVE [None]
  - DYSPNOEA [None]
  - HAEMORRHAGE [None]
  - HEADACHE [None]
  - LARYNGITIS [None]
  - MUSCLE SPASMS [None]
  - MUSCULOSKELETAL STIFFNESS [None]
  - MYALGIA [None]
  - NAUSEA [None]
  - OTORRHOEA [None]
  - OVERDOSE [None]
  - PAIN [None]
  - PRODUCT COUNTERFEIT [None]
  - PRODUCT QUALITY ISSUE [None]
  - PULMONARY HAEMORRHAGE [None]
  - SOMNOLENCE [None]
  - WEGENER'S GRANULOMATOSIS [None]
  - WHEEZING [None]
  - WHITE BLOOD CELL COUNT DECREASED [None]
